FAERS Safety Report 7239600-2 (Version None)
Quarter: 2011Q1

REPORT INFORMATION
  Report Type: 
  Country: None (occurrence: None)
  Receive Date: 20110122
  Receipt Date: 20110117
  Transmission Date: 20110831
  Serious: Yes (Other)
  Sender: FDA-Public Use
  Company Number: US-AMGEN-USASP2011002916

PATIENT
  Age: 62 Year
  Sex: Female

DRUGS (1)
  1. ENBREL [Suspect]
     Indication: RHEUMATOID ARTHRITIS
     Dates: start: 20090817, end: 20101224

REACTIONS (13)
  - EYE PRURITUS [None]
  - BODY TEMPERATURE DECREASED [None]
  - FLATULENCE [None]
  - DENTAL CARIES [None]
  - SALIVARY GLAND CALCULUS [None]
  - HYPERHIDROSIS [None]
  - TOOTH DISORDER [None]
  - ARTHRALGIA [None]
  - SINUS HEADACHE [None]
  - GASTROINTESTINAL CANDIDIASIS [None]
  - ABDOMINAL DISTENSION [None]
  - DRY MOUTH [None]
  - FEELING COLD [None]
